FAERS Safety Report 5634514-3 (Version None)
Quarter: 2008Q1

REPORT INFORMATION
  Report Type: 
  Country: None (occurrence: None)
  Receive Date: 20080131
  Receipt Date: 20071126
  Transmission Date: 20080703
  Serious: No
  Sender: FDA-Public Use
  Company Number: 163-21880-07111408

PATIENT
  Age: 49 Year
  Sex: Female

DRUGS (4)
  1. REVLIMID [Suspect]
     Indication: MULTIPLE MYELOMA
     Dosage: 25 MG, DAILY X 21 DAYS, ORAL
     Route: 048
     Dates: start: 20071102
  2. ASPIRIN [Concomitant]
  3. DEXAMETHASONE TAB [Concomitant]
  4. ZOMETA [Concomitant]

REACTIONS (3)
  - FATIGUE [None]
  - NAUSEA [None]
  - SKIN DISORDER [None]
